FAERS Safety Report 7082540-2 (Version None)
Quarter: 2010Q3

REPORT INFORMATION
  Report Type: 
  Country: None (occurrence: None)
  Receive Date: 20100929
  Receipt Date: 20100601
  Transmission Date: 20110219
  Serious: No
  Sender: FDA-Public Use
  Company Number: US-WYE-H15454410

PATIENT
  Age: 58 Year
  Sex: Male
  Weight: 87.17 kg

DRUGS (6)
  1. PRISTIQ [Suspect]
     Indication: DEPRESSION
     Dosage: 50 MG 1X PER 1 DAY, ORAL; ^BEGAN SPLITTING A 100 MG TABLET IN HALF^, ORAL
     Route: 048
     Dates: start: 20090101, end: 20100401
  2. PRISTIQ [Suspect]
     Indication: DEPRESSION
     Dosage: 50 MG 1X PER 1 DAY, ORAL; ^BEGAN SPLITTING A 100 MG TABLET IN HALF^, ORAL
     Route: 048
     Dates: start: 20100401
  3. CHANTIX [Concomitant]
     Indication: EX-TOBACCO USER
     Dosage: 1 MG 2X PER 1 DAY, ORAL
     Route: 048
     Dates: start: 20080101, end: 20090101
  4. CHANTIX [Concomitant]
     Indication: EX-TOBACCO USER
     Dosage: 1 MG 2X PER 1 DAY, ORAL
     Route: 048
     Dates: start: 20100401
  5. CARVEDILOL [Concomitant]
  6. ASPIRIN [Concomitant]

REACTIONS (5)
  - BLOOD TRIGLYCERIDES INCREASED [None]
  - DEPRESSION [None]
  - FATIGUE [None]
  - LETHARGY [None]
  - SENSATION OF FOREIGN BODY [None]
